FAERS Safety Report 20907827 (Version 2)
Quarter: 2022Q2

REPORT INFORMATION
  Report Type: Spontaneous
  Country: US (occurrence: US)
  Receive Date: 20220602
  Receipt Date: 20220622
  Transmission Date: 20220721
  Serious: No
  Sender: FDA-Public Use
  Company Number: US-ORGANON-O2205USA002496

PATIENT
  Age: 23 Year
  Sex: Female
  Weight: 122.45 kg

DRUGS (1)
  1. NEXPLANON [Suspect]
     Active Substance: ETONOGESTREL
     Dosage: 1 DOSAGE FORM (ROD), 68 MG ONCE, IN LEFT ARM
     Route: 059
     Dates: start: 201905, end: 20220527

REACTIONS (2)
  - Device breakage [Recovered/Resolved]
  - No adverse event [Unknown]
